FAERS Safety Report 25570759 (Version 5)
Quarter: 2025Q4

REPORT INFORMATION
  Report Type: Report from Study
  Country: US (occurrence: US)
  Receive Date: 20250717
  Receipt Date: 20251002
  Transmission Date: 20260117
  Serious: No
  Sender: BOEHRINGER INGELHEIM
  Company Number: US-Komodo Health-a23aa000007WftdAAC

PATIENT
  Age: 79 Year
  Sex: Female

DRUGS (2)
  1. CYLTEZO [Suspect]
     Active Substance: ADALIMUMAB-ADBM
     Indication: Rheumatoid arthritis
     Dosage: INJECT 40 MG UNDER THE SKIN EVERY 2 (TWO) WEEKS.
     Dates: start: 20250204
  2. CYLTEZO [Suspect]
     Active Substance: ADALIMUMAB-ADBM
     Dates: start: 202412, end: 202501

REACTIONS (5)
  - Injection site bruising [Unknown]
  - Drug ineffective [Unknown]
  - Influenza [Recovered/Resolved]
  - Pneumonia [Recovered/Resolved]
  - Device mechanical issue [Unknown]

NARRATIVE: CASE EVENT DATE: 20250101
